FAERS Safety Report 6706662-8 (Version None)
Quarter: 2010Q2

REPORT INFORMATION
  Report Type: 
  Country: None (occurrence: None)
  Receive Date: 20100503
  Receipt Date: 20100319
  Transmission Date: 20101027
  Serious: Yes (Hospitalization, Other)
  Sender: FDA-Public Use
  Company Number: US-BAXTER-2009BH019524

PATIENT
  Age: 65 Year
  Sex: Male
  Weight: 72 kg

DRUGS (34)
  1. HEPARIN SODIUM INJECTION [Suspect]
     Indication: DRUG USE FOR UNKNOWN INDICATION
     Route: 040
     Dates: start: 20071217, end: 20071217
  2. HEPARIN SODIUM INJECTION [Suspect]
     Route: 041
     Dates: start: 20071217, end: 20071220
  3. HEPARIN SODIUM INJECTION [Suspect]
     Route: 058
     Dates: start: 20071214, end: 20071214
  4. HEPARIN SODIUM INJECTION [Suspect]
     Route: 058
     Dates: start: 20071215, end: 20071215
  5. HEPARIN SODIUM INJECTION [Suspect]
     Route: 058
     Dates: start: 20071215, end: 20071215
  6. HEPARIN SODIUM INJECTION [Suspect]
     Route: 058
     Dates: start: 20071216, end: 20071216
  7. HEPARIN SODIUM INJECTION [Suspect]
     Route: 058
     Dates: start: 20071217, end: 20071217
  8. HEPARIN SODIUM INJECTION [Suspect]
     Route: 040
     Dates: start: 20071217, end: 20071217
  9. NOVOLIN [Concomitant]
     Indication: DRUG USE FOR UNKNOWN INDICATION
     Route: 065
  10. NOVOLIN R [Concomitant]
     Indication: DRUG USE FOR UNKNOWN INDICATION
     Route: 065
  11. SIMVASTATIN [Concomitant]
     Indication: DRUG USE FOR UNKNOWN INDICATION
     Route: 065
  12. SIMVASTATIN [Concomitant]
     Route: 065
  13. CARVEDILOL [Concomitant]
     Indication: DRUG USE FOR UNKNOWN INDICATION
     Route: 065
  14. LISINOPRIL [Concomitant]
     Indication: DRUG USE FOR UNKNOWN INDICATION
     Route: 065
  15. ASPIRIN [Concomitant]
     Indication: DRUG USE FOR UNKNOWN INDICATION
     Route: 065
  16. LOPRESSOR [Concomitant]
     Indication: DRUG USE FOR UNKNOWN INDICATION
     Route: 065
  17. DILAUDID [Concomitant]
     Indication: DRUG USE FOR UNKNOWN INDICATION
     Route: 065
  18. ZOFRAN [Concomitant]
     Indication: DRUG USE FOR UNKNOWN INDICATION
     Route: 065
  19. XANAX [Concomitant]
     Indication: DRUG USE FOR UNKNOWN INDICATION
     Route: 065
  20. ISOSORBIDE DINITRATE [Concomitant]
     Indication: DRUG USE FOR UNKNOWN INDICATION
     Route: 065
  21. STOOL SOFTENER [Concomitant]
     Indication: DRUG USE FOR UNKNOWN INDICATION
     Route: 065
  22. BISACODYL [Concomitant]
     Indication: DRUG USE FOR UNKNOWN INDICATION
     Route: 065
  23. SENNA-GEN [Concomitant]
     Indication: DRUG USE FOR UNKNOWN INDICATION
     Route: 065
  24. ROCEPHIN [Concomitant]
     Indication: DRUG USE FOR UNKNOWN INDICATION
     Route: 065
  25. POLYETHYLENE GLYCOL [Concomitant]
     Indication: DRUG USE FOR UNKNOWN INDICATION
     Route: 065
     Dates: start: 20071214
  26. ISOSORBIDE MONONITRATE [Concomitant]
     Indication: DRUG USE FOR UNKNOWN INDICATION
     Route: 065
  27. PANTOPRAZOLE [Concomitant]
     Indication: DRUG USE FOR UNKNOWN INDICATION
     Route: 042
  28. SODIUM CHLORIDE 0.9% IN PLASTIC CONTAINER [Concomitant]
     Indication: DRUG USE FOR UNKNOWN INDICATION
     Route: 042
  29. HYDROMORPHONE HYDROCHLORIDE [Concomitant]
     Indication: DRUG USE FOR UNKNOWN INDICATION
     Route: 065
  30. GOLYTELY [Concomitant]
     Indication: DRUG USE FOR UNKNOWN INDICATION
     Route: 065
     Dates: start: 20071215
  31. LOVENOX [Concomitant]
     Indication: DRUG USE FOR UNKNOWN INDICATION
     Route: 065
     Dates: start: 20071216
  32. FLAGYL [Concomitant]
     Indication: DRUG USE FOR UNKNOWN INDICATION
     Route: 065
  33. KEFZOL [Concomitant]
     Indication: DRUG USE FOR UNKNOWN INDICATION
     Route: 065
     Dates: start: 20071217
  34. MAKOFENDAL [Concomitant]
     Indication: DRUG USE FOR UNKNOWN INDICATION
     Route: 065
     Dates: start: 20071217

REACTIONS (1)
  - EMBOLIC STROKE [None]
